FAERS Safety Report 10049812 (Version 2)
Quarter: 2014Q2

REPORT INFORMATION
  Report Type: Spontaneous
  Country: US (occurrence: US)
  Receive Date: 20140401
  Receipt Date: 20140401
  Transmission Date: 20141212
  Serious: Yes (Hospitalization)
  Sender: FDA-Public Use
  Company Number: US-SA-POMP-1002324

PATIENT
  Age: 16 Year
  Sex: Female
  Weight: 50.6 kg

DRUGS (10)
  1. LUMIZYME [Suspect]
     Indication: GLYCOGEN STORAGE DISEASE TYPE II
     Dosage: 17.8 MG/KG, Q2W
     Route: 042
     Dates: start: 20101231
  2. LUMIZYME [Suspect]
     Indication: GLYCOGEN STORAGE DISEASE TYPE II
     Dosage: 19.8 MG/KG, Q2W
     Route: 042
     Dates: start: 20120716, end: 20120716
  3. SOLU-MEDROL [Concomitant]
     Indication: PREMEDICATION
     Dosage: UNK
     Route: 042
  4. BENADRYL [Concomitant]
     Indication: PREMEDICATION
     Dosage: UNK
     Route: 042
  5. IBUPROFEN [Concomitant]
     Indication: PREMEDICATION
     Dosage: UNK
     Route: 042
  6. ZOLOFT [Concomitant]
     Dosage: 50 MG, QD
  7. ELAVIL [Concomitant]
     Dosage: 50 MG, QD
  8. EPHEDRINE [Concomitant]
     Dosage: 25 MG, BID
  9. GABAPENTIN [Concomitant]
     Dosage: 300 MG, TID
  10. CELEBREX [Concomitant]
     Dosage: 100 MG, BID

REACTIONS (7)
  - Pain [Recovered/Resolved]
  - Dizziness [Recovered/Resolved]
  - Paraesthesia [Not Recovered/Not Resolved]
  - Muscle spasms [Not Recovered/Not Resolved]
  - Nausea [Recovered/Resolved]
  - Abdominal pain [Recovered/Resolved]
  - Myalgia [Not Recovered/Not Resolved]
